FAERS Safety Report 12243803 (Version 1)
Quarter: 2016Q2

REPORT INFORMATION
  Report Type: Spontaneous
  Country: ID (occurrence: ID)
  Receive Date: 20160406
  Receipt Date: 20160406
  Transmission Date: 20160815
  Serious: Yes (Other)
  Sender: FDA-Public Use
  Company Number: PHHY2016ID043420

PATIENT
  Sex: Male

DRUGS (2)
  1. GLIVEC [Suspect]
     Active Substance: IMATINIB MESYLATE
     Dosage: 800 MG, QD
     Route: 065
  2. GLIVEC [Suspect]
     Active Substance: IMATINIB MESYLATE
     Indication: PRODUCT USED FOR UNKNOWN INDICATION
     Dosage: 400 MG, QD
     Route: 065
     Dates: start: 2014

REACTIONS (8)
  - Metastatic neoplasm [Unknown]
  - Pleural effusion [Unknown]
  - Metastases to liver [Unknown]
  - Ascites [Unknown]
  - Abdominal pain upper [Unknown]
  - Atelectasis [Unknown]
  - Pericardial effusion [Unknown]
  - Abdominal wall cyst [Unknown]

NARRATIVE: CASE EVENT DATE: 20160315
